FAERS Safety Report 7191744-X (Version None)
Quarter: 2010Q4

REPORT INFORMATION
  Report Type: 
  Country: None (occurrence: None)
  Receive Date: 20101223
  Receipt Date: 20101208
  Transmission Date: 20110411
  Serious: Yes (Hospitalization, Other)
  Sender: FDA-Public Use
  Company Number: PHHY2010KR83809

PATIENT
  Age: 60 Year
  Sex: Female

DRUGS (1)
  1. IMATINIB [Suspect]
     Indication: CHRONIC MYELOID LEUKAEMIA
     Dosage: 400 MG PER DAY

REACTIONS (11)
  - BLOOD PARATHYROID HORMONE INCREASED [None]
  - BLOOD PHOSPHORUS DECREASED [None]
  - BONE FORMATION DECREASED [None]
  - DYSSTASIA [None]
  - FEMUR FRACTURE [None]
  - FRACTURE DELAYED UNION [None]
  - GAIT DISTURBANCE [None]
  - INTRAMEDULLARY ROD INSERTION [None]
  - OSTEOARTHRITIS [None]
  - OSTEOCALCIN DECREASED [None]
  - PAIN IN EXTREMITY [None]
